FAERS Safety Report 4860443-9 (Version None)
Quarter: 2005Q4

REPORT INFORMATION
  Report Type: 
  Country: None (occurrence: None)
  Receive Date: 20051219
  Receipt Date: 20051212
  Transmission Date: 20060501
  Serious: Yes (Other)
  Sender: FDA-Public Use
  Company Number: PHNU2005DE04134

PATIENT
  Age: 40 Year
  Sex: Male

DRUGS (1)
  1. LOCOL [Suspect]
     Indication: PROPHYLAXIS
     Dosage: 80 MG, QD
     Route: 048

REACTIONS (1)
  - GLAUCOMA [None]
